FAERS Safety Report 19662355 (Version 1)
Quarter: 2021Q3

REPORT INFORMATION
  Report Type: Spontaneous
  Country: US (occurrence: US)
  Receive Date: 20210805
  Receipt Date: 20210805
  Transmission Date: 20211014
  Serious: Yes (Other)
  Sender: FDA-Public Use
  Company Number: US-PURDUE PHARMA-USA-2021-0280719

PATIENT
  Sex: Female

DRUGS (1)
  1. HYDROMORPHONE HCL (SIMILAR TO 19?892) [Suspect]
     Active Substance: HYDROMORPHONE HYDROCHLORIDE
     Indication: PAIN
     Dosage: 2 MG, UNK
     Route: 048

REACTIONS (5)
  - Feeling abnormal [Unknown]
  - Myocardial infarction [Unknown]
  - Product physical issue [Unknown]
  - Poor quality product administered [Unknown]
  - Product taste abnormal [Unknown]

NARRATIVE: CASE EVENT DATE: 20210802
